FAERS Safety Report 12501152 (Version 1)
Quarter: 2016Q2

REPORT INFORMATION
  Report Type: Report from Study
  Country: CA (occurrence: CA)
  Receive Date: 20160627
  Receipt Date: 20160627
  Transmission Date: 20160815
  Serious: Yes (Other)
  Sender: FDA-Public Use
  Company Number: CA-JNJFOC-20160412626

PATIENT
  Age: 28 Year
  Sex: Male
  Weight: 82 kg

DRUGS (2)
  1. REMICADE [Suspect]
     Active Substance: INFLIXIMAB
     Indication: CROHN^S DISEASE
     Dosage: 6-7 WEEKS; THERAPY DURATION: 52 WEEKS
     Route: 042
     Dates: start: 20100525
  2. REMICADE [Suspect]
     Active Substance: INFLIXIMAB
     Indication: CROHN^S DISEASE
     Route: 042
     Dates: start: 20160530

REACTIONS (12)
  - Oedema [Unknown]
  - Lymphadenopathy [Unknown]
  - Sinusitis [Unknown]
  - Oropharyngeal pain [Unknown]
  - Secretion discharge [Unknown]
  - Psoriasis [Unknown]
  - Off label use [Unknown]
  - Product use issue [Unknown]
  - Nasal congestion [Unknown]
  - Ear pain [Unknown]
  - Upper respiratory tract infection [Unknown]
  - Crohn^s disease [Unknown]

NARRATIVE: CASE EVENT DATE: 20100525
